FAERS Safety Report 24994251 (Version 1)
Quarter: 2025Q1

REPORT INFORMATION
  Report Type: Spontaneous
  Country: US (occurrence: None)
  Receive Date: 20250220
  Receipt Date: 20250220
  Transmission Date: 20250408
  Serious: Yes (Life-Threatening, Hospitalization)
  Sender: FDA-CTU
  Company Number: None

PATIENT
  Age: 75 Year
  Sex: Male
  Weight: 281 kg

DRUGS (1)
  1. ALBUTEROL SULFATE [Suspect]
     Active Substance: ALBUTEROL SULFATE
     Indication: Chronic obstructive pulmonary disease
     Dosage: FREQUENCY : 4 TIMES A DAY;?
     Route: 055

REACTIONS (5)
  - Cough [None]
  - Atrial fibrillation [None]
  - Heart rate irregular [None]
  - Palpitations [None]
  - Vomiting [None]

NARRATIVE: CASE EVENT DATE: 20241010
